FAERS Safety Report 10901898 (Version 1)
Quarter: 2015Q1

REPORT INFORMATION
  Report Type: Spontaneous
  Country: None (occurrence: None)
  Receive Date: 20150303
  Receipt Date: 20150303
  Transmission Date: 20150721
  Serious: Yes (Disabling)
  Sender: FDA-Public Use
  Company Number: None

PATIENT
  Age: 54 Year
  Sex: Female
  Weight: 83.92 kg

DRUGS (1)
  1. ROPINIROLE. [Suspect]
     Active Substance: ROPINIROLE
     Indication: RESTLESS LEGS SYNDROME
     Route: 048

REACTIONS (7)
  - Neuralgia [None]
  - Inflammation [None]
  - Joint swelling [None]
  - Sleep disorder [None]
  - Skin discolouration [None]
  - Peripheral swelling [None]
  - Weight increased [None]

NARRATIVE: CASE EVENT DATE: 20150302
